FAERS Safety Report 19934733 (Version 2)
Quarter: 2021Q4

REPORT INFORMATION
  Report Type: Spontaneous
  Country: US (occurrence: US)
  Receive Date: 20211008
  Receipt Date: 20211213
  Transmission Date: 20220303
  Serious: Yes (Death, Other)
  Sender: FDA-Public Use
  Company Number: US-SMITH AND NEPHEW, INC-2021SMT00048

PATIENT
  Age: 60 Year
  Sex: Male
  Weight: 146 kg

DRUGS (21)
  1. REGRANEX [Suspect]
     Active Substance: BECAPLERMIN
     Dosage: ON FOOT ON RIGHT HEEL
     Route: 061
  2. ALLOPURINOL [Concomitant]
     Active Substance: ALLOPURINOL
     Dosage: 300 MG, 1X/DAY
     Route: 048
  3. ATORVASTATIN [Concomitant]
     Active Substance: ATORVASTATIN
     Dosage: 40 MG, 1X/DAY
     Route: 048
  4. CARVEDILOL [Concomitant]
     Active Substance: CARVEDILOL
     Dosage: 12.5 MG, 2X/DAY
     Route: 048
  5. HUMALOG KWIKPEN [Concomitant]
     Active Substance: INSULIN LISPRO
     Dosage: 6 DOSAGE UNITS, 2X/DAY
     Route: 058
  6. HYDROCODONE; ACETAMINOPHEN [Concomitant]
     Dosage: 1 TABLETS, 2X/DAY AS NEEDED
     Route: 048
  7. LANTUS [Concomitant]
     Active Substance: INSULIN GLARGINE
     Dosage: 74 DOSAGE UNITS DAILY
     Route: 058
  8. LEVOFLOXACIN [Concomitant]
     Active Substance: LEVOFLOXACIN
     Dosage: 1 TABLETS, 1X/DAY
     Route: 048
  9. LOSARTAN [Concomitant]
     Active Substance: LOSARTAN
     Dosage: 1 TABLETS, 1X/DAY
     Route: 048
  10. METOLAZONE [Concomitant]
     Active Substance: METOLAZONE
     Dosage: 1 TABLETS, 1X/DAY
     Route: 048
  11. NEPHRO VITE RX [Concomitant]
     Active Substance: ASCORBIC ACID\BIOTIN\CALCIUM PANTOTHENATE\CYANOCOBALAMIN\FOLIC ACID\NIACINAMIDE\PYRIDOXINE HYDROCHLO
     Dosage: 1 TABLETS, 1X/DAY
  12. OMEPRAZOLE [Concomitant]
     Active Substance: OMEPRAZOLE
     Dosage: 20 MG, 1X/DAY
     Route: 048
  13. OPSUMIT [Concomitant]
     Active Substance: MACITENTAN
     Dosage: 10 MG, 1X/DAY
     Route: 048
  14. SILDENAFIL [Concomitant]
     Active Substance: SILDENAFIL
     Dosage: 1 TABLETS, 1X/DAY
     Route: 048
  15. TORSEMIDE [Concomitant]
     Active Substance: TORSEMIDE
     Dosage: 20 MG, 1X/DAY
     Route: 048
  16. TRAMADOL [Concomitant]
     Active Substance: TRAMADOL
     Dosage: 1 TAB EVERY 8 HOURS AS NEEDED
     Route: 048
  17. TRINTELLIX [Concomitant]
     Active Substance: VORTIOXETINE HYDROBROMIDE
     Dosage: 1 TABLETS, 1X/DAY
     Route: 048
  18. TRULICITY [Concomitant]
     Active Substance: DULAGLUTIDE
     Route: 058
  19. XARELTO [Concomitant]
     Active Substance: RIVAROXABAN
     Dosage: 1 TABLETS, 1X/DAY
     Route: 048
  20. BD ULTRA-FINE PEN NEEDLES 31 G 5 MM [Concomitant]
     Dosage: 1 DAILY
  21. DEVICE [Concomitant]
     Active Substance: DEVICE
     Dosage: 1 AS DIRECTED AS NEEDED

REACTIONS (24)
  - Completed suicide [Fatal]
  - Craniocerebral injury [Fatal]
  - Cardiac arrest [Fatal]
  - Pulse absent [Fatal]
  - Breath sounds absent [Fatal]
  - Acute respiratory failure [Fatal]
  - Cerebral haemorrhage [Fatal]
  - Subarachnoid haemorrhage [Fatal]
  - Subdural haemorrhage [Fatal]
  - Gun shot wound [Fatal]
  - Haemorrhage [Fatal]
  - Brain herniation [Fatal]
  - Cephalhaematoma [Fatal]
  - Arterial haemorrhage [Fatal]
  - Skull fracture [Fatal]
  - Respiration abnormal [Fatal]
  - Hypotension [Unknown]
  - Hyperkalaemia [Not Recovered/Not Resolved]
  - Pupil fixed [Not Recovered/Not Resolved]
  - Mydriasis [Not Recovered/Not Resolved]
  - Nystagmus [Not Recovered/Not Resolved]
  - Bruxism [Recovered/Resolved]
  - Hypertension [Recovered/Resolved]
  - Tachycardia [Recovered/Resolved]

NARRATIVE: CASE EVENT DATE: 20210827
